FAERS Safety Report 7550471-7 (Version None)
Quarter: 2011Q2

REPORT INFORMATION
  Report Type: 
  Country: None (occurrence: None)
  Receive Date: 20110615
  Receipt Date: 20110608
  Transmission Date: 20111010
  Serious: Yes (Hospitalization, Other)
  Sender: FDA-Public Use
  Company Number: US-MERCK-1103USA02675

PATIENT
  Age: 76 Year
  Sex: Female

DRUGS (2)
  1. FOSAMAX [Suspect]
     Indication: OSTEOPOROSIS
     Route: 048
     Dates: start: 19990101, end: 20090227
  2. FOSAMAX [Suspect]
     Indication: OSTEOPENIA
     Route: 048
     Dates: start: 19990101, end: 20090227

REACTIONS (24)
  - MENTAL STATUS CHANGES [None]
  - FALL [None]
  - CARDIAC FAILURE CONGESTIVE [None]
  - HUMERUS FRACTURE [None]
  - DEPRESSION [None]
  - PEPTIC ULCER [None]
  - VITAMIN B12 DEFICIENCY [None]
  - SKIN ULCER [None]
  - CHRONIC OBSTRUCTIVE PULMONARY DISEASE [None]
  - JOINT DISLOCATION [None]
  - HYPONATRAEMIA [None]
  - IRON DEFICIENCY ANAEMIA [None]
  - CLOSTRIDIUM DIFFICILE COLITIS [None]
  - SLEEP APNOEA SYNDROME [None]
  - TIBIA FRACTURE [None]
  - HIP FRACTURE [None]
  - URINARY TRACT INFECTION [None]
  - LOW TURNOVER OSTEOPATHY [None]
  - GASTROINTESTINAL HAEMORRHAGE [None]
  - PULMONARY HYPERTENSION [None]
  - PULMONARY EMBOLISM [None]
  - MUSCULOSKELETAL PAIN [None]
  - OSTEOARTHRITIS [None]
  - HEAD INJURY [None]
